FAERS Safety Report 12302094 (Version 2)
Quarter: 2016Q2

REPORT INFORMATION
  Report Type: Spontaneous
  Country: US (occurrence: US)
  Receive Date: 20160425
  Receipt Date: 20160502
  Transmission Date: 20160815
  Serious: Yes (Other)
  Sender: FDA-Public Use
  Company Number: US-TEVA-653996USA

PATIENT
  Age: 59 Year
  Sex: Female

DRUGS (1)
  1. ZECUITY [Suspect]
     Active Substance: SUMATRIPTAN SUCCINATE
     Indication: MIGRAINE
     Route: 062
     Dates: start: 20160417, end: 20160417

REACTIONS (7)
  - Application site pain [Unknown]
  - Application site scab [Unknown]
  - Skin disorder [Unknown]
  - Application site erythema [Unknown]
  - Application site paraesthesia [Unknown]
  - Application site discolouration [Unknown]
  - Application site burn [Unknown]

NARRATIVE: CASE EVENT DATE: 20160417
